FAERS Safety Report 23302358 (Version 2)
Quarter: 2024Q1

REPORT INFORMATION
  Report Type: Spontaneous
  Country: US (occurrence: US)
  Receive Date: 20231215
  Receipt Date: 20240329
  Transmission Date: 20240410
  Serious: No
  Sender: FDA-Public Use
  Company Number: US-ABBVIE-5540627

PATIENT
  Sex: Female
  Weight: 95 kg

DRUGS (2)
  1. RESTASIS [Suspect]
     Active Substance: CYCLOSPORINE
     Indication: Dry eye
     Dosage: STRENGTH: 0.5MG/ML
     Route: 047
  2. RINVOQ [Suspect]
     Active Substance: UPADACITINIB
     Indication: Product used for unknown indication
     Route: 048

REACTIONS (5)
  - Eye inflammation [Unknown]
  - Visual impairment [Unknown]
  - Drug ineffective [Unknown]
  - Eye pain [Recovered/Resolved]
  - Superficial injury of eye [Unknown]
